FAERS Safety Report 4749043-9 (Version None)
Quarter: 2005Q3

REPORT INFORMATION
  Report Type: 
  Country: None (occurrence: None)
  Receive Date: 20050819
  Receipt Date: 20050809
  Transmission Date: 20060218
  Serious: Yes (Death)
  Sender: FDA-Public Use
  Company Number: DE-JNJFOC-20050802161

PATIENT
  Sex: Male
  Weight: 76 kg

DRUGS (3)
  1. DURAGESIC-100 [Suspect]
     Indication: PAIN
     Route: 062
  2. ARAVA [Concomitant]
     Route: 065
  3. CELEBREX [Concomitant]
     Route: 065

REACTIONS (1)
  - DEATH [None]
